FAERS Safety Report 8614877-7 (Version None)
Quarter: 2012Q3

REPORT INFORMATION
  Report Type: 
  Country: None (occurrence: None)
  Receive Date: 20120823
  Receipt Date: 20120619
  Transmission Date: 20120928
  Serious: No
  Sender: FDA-Public Use
  Company Number: US-BRISTOL-MYERS SQUIBB COMPANY-16696502

PATIENT
  Age: 79 Year
  Sex: Female
  Weight: 73 kg

DRUGS (2)
  1. KOMBIGLYZE XR [Suspect]
     Dosage: 1DF:5/1000
     Dates: start: 20120507
  2. LANTUS [Concomitant]

REACTIONS (3)
  - CHEST PAIN [None]
  - RENAL PAIN [None]
  - URINARY TRACT DISORDER [None]
